FAERS Safety Report 5543955-4 (Version None)
Quarter: 2007Q4

REPORT INFORMATION
  Report Type: 
  Country: None (occurrence: None)
  Receive Date: 20071210
  Receipt Date: 20070416
  Transmission Date: 20080405
  Serious: No
  Sender: FDA-Public Use
  Company Number: US-AMGEN-KDL198365

PATIENT
  Sex: Female
  Weight: 61.3 kg

DRUGS (4)
  1. ENBREL [Suspect]
     Indication: PSORIASIS
     Route: 058
     Dates: start: 20061001
  2. KLONOPIN [Concomitant]
  3. SEROQUEL [Concomitant]
  4. DOVONEX [Concomitant]

REACTIONS (6)
  - HEADACHE [None]
  - INJECTION SITE BRUISING [None]
  - INJECTION SITE HAEMORRHAGE [None]
  - INJECTION SITE PAIN [None]
  - INJECTION SITE REACTION [None]
  - PAIN [None]
